FAERS Safety Report 11777608 (Version 2)
Quarter: 2015Q4

REPORT INFORMATION
  Report Type: Other
  Country: IT (occurrence: IT)
  Receive Date: 20151125
  Receipt Date: 20151202
  Transmission Date: 20160304
  Serious: Yes (Other)
  Sender: FDA-Public Use
  Company Number: IT-MYLANLABS-2015M1041392

PATIENT

DRUGS (1)
  1. CIPROFLOXACINA [Suspect]
     Active Substance: CIPROFLOXACIN
     Indication: ANTIBIOTIC PROPHYLAXIS
     Dosage: UNK UNK, QD
     Route: 048

REACTIONS (6)
  - Clostridium difficile colitis [Unknown]
  - Dysentery [Unknown]
  - Dysuria [Unknown]
  - Vomiting [Unknown]
  - Hyperpyrexia [Unknown]
  - Cough [Unknown]

NARRATIVE: CASE EVENT DATE: 20150914
